FAERS Safety Report 5407232-4 (Version None)
Quarter: 2007Q3

REPORT INFORMATION
  Report Type: 
  Country: None (occurrence: None)
  Receive Date: 20070807
  Receipt Date: 20070803
  Transmission Date: 20080115
  Serious: Yes (Hospitalization)
  Sender: FDA-Public Use
  Company Number: A0667884A

PATIENT
  Age: 52 Year
  Sex: Female

DRUGS (15)
  1. COREG [Suspect]
     Dosage: 6.25MG TWICE PER DAY
     Route: 048
     Dates: start: 20020101, end: 20070714
  2. COREG CR [Suspect]
     Dosage: 20MG PER DAY
     Route: 048
     Dates: start: 20070715
  3. POTASSIUM CHLORIDE [Concomitant]
  4. METFORMIN HCL [Concomitant]
  5. SYNTHROID [Concomitant]
  6. ASPIRIN [Concomitant]
  7. LASIX [Concomitant]
  8. ALDACTONE [Concomitant]
  9. FISH OIL [Concomitant]
  10. MAGNESIUM SULFATE [Concomitant]
  11. RISPERDAL [Concomitant]
  12. GLYCOLAX [Concomitant]
  13. VYTORIN [Concomitant]
  14. PLAVIX [Concomitant]
  15. MULTI-VITAMIN [Concomitant]

REACTIONS (9)
  - BLOOD PRESSURE INCREASED [None]
  - CHEST DISCOMFORT [None]
  - CORONARY ARTERY BYPASS [None]
  - DIZZINESS [None]
  - SENSATION OF HEAVINESS [None]
  - SENSORY DISTURBANCE [None]
  - WEIGHT DECREASED [None]
  - WEIGHT INCREASED [None]
  - WEIGHT LOSS POOR [None]
